FAERS Safety Report 8608377 (Version 2)
Quarter: 2013Q4

REPORT INFORMATION
  Report Type: Spontaneous
  Country: US (occurrence: US)
  Receive Date: 20120611
  Receipt Date: 20131008
  Transmission Date: 20140711
  Serious: Yes (Other)
  Sender: FDA-Public Use
  Company Number: US-ROCHE-1074867

PATIENT
  Sex: Female

DRUGS (2)
  1. KLONOPIN [Suspect]
     Indication: INSOMNIA
     Route: 048
     Dates: start: 201111
  2. MINOCIN [Concomitant]

REACTIONS (10)
  - Antinuclear antibody positive [Unknown]
  - Hair texture abnormal [Unknown]
  - Abdominal pain upper [Unknown]
  - Tremor [Unknown]
  - Chills [Unknown]
  - Diarrhoea [Unknown]
  - Weight decreased [Unknown]
  - Decreased appetite [Unknown]
  - Drug administration error [Unknown]
  - Drug withdrawal syndrome [Unknown]
